FAERS Safety Report 20512279 (Version 1)
Quarter: 2022Q1

REPORT INFORMATION
  Report Type: Spontaneous
  Country: US (occurrence: None)
  Receive Date: 20220223
  Receipt Date: 20220223
  Transmission Date: 20220423
  Serious: Yes (Disabling)
  Sender: FDA-Public Use
  Company Number: None

PATIENT
  Age: 40 Year
  Sex: Female
  Weight: 51.75 kg

DRUGS (5)
  1. GADAVIST [Suspect]
     Active Substance: GADOBUTROL
     Indication: Magnetic resonance imaging
     Dosage: OTHER QUANTITY : 1 INJECTION(S);?OTHER FREQUENCY : ONCE;?
     Route: 058
     Dates: start: 20211122, end: 20211122
  2. SERTRALINE [Concomitant]
     Active Substance: SERTRALINE HYDROCHLORIDE
  3. VITAMINS [Concomitant]
     Active Substance: VITAMINS
  4. PROBIOTICS NOS [Concomitant]
     Active Substance: PROBIOTICS NOS
  5. ADVIL [Concomitant]
     Active Substance: IBUPROFEN

REACTIONS (16)
  - Swelling of eyelid [None]
  - Facial pain [None]
  - Periorbital swelling [None]
  - Headache [None]
  - Facial discomfort [None]
  - Rash [None]
  - Myalgia [None]
  - Arthralgia [None]
  - Crying [None]
  - Decreased activity [None]
  - Swelling face [None]
  - Dry skin [None]
  - Skin exfoliation [None]
  - Depressed mood [None]
  - Social avoidant behaviour [None]
  - Heavy metal increased [None]

NARRATIVE: CASE EVENT DATE: 20211122
